FAERS Safety Report 24054757 (Version 2)
Quarter: 2024Q3

REPORT INFORMATION
  Report Type: Spontaneous
  Country: FR (occurrence: FR)
  Receive Date: 20240705
  Receipt Date: 20240821
  Transmission Date: 20241017
  Serious: Yes (Hospitalization, Other)
  Sender: INSUD PHARMA
  Company Number: FR-EXELTIS PHARMACEUTICAL HOLDING, S.L.-2406FR05138

PATIENT
  Age: 21 Year
  Sex: Female

DRUGS (3)
  1. DROSPIRENONE [Suspect]
     Active Substance: DROSPIRENONE
     Indication: Contraception
     Dosage: 4 MILLIGRAM, QD
     Route: 048
     Dates: start: 202303
  2. LYRICA [Concomitant]
     Active Substance: PREGABALIN
     Indication: Pain
  3. ACETAMINOPHEN\OPIUM [Concomitant]
     Active Substance: ACETAMINOPHEN\OPIUM
     Indication: Endometriosis
     Dosage: UNK, PRN

REACTIONS (4)
  - Pregnancy on oral contraceptive [Recovered/Resolved]
  - Pyelonephritis [Recovered/Resolved]
  - Foetal exposure during pregnancy [Unknown]
  - Drug ineffective [Unknown]

NARRATIVE: CASE EVENT DATE: 20230801
